FAERS Safety Report 7358697-2 (Version None)
Quarter: 2011Q1

REPORT INFORMATION
  Report Type: 
  Country: None (occurrence: None)
  Receive Date: 20110317
  Receipt Date: 20110308
  Transmission Date: 20110831
  Serious: Yes (Hospitalization)
  Sender: FDA-Public Use
  Company Number: A0770482A

PATIENT
  Age: 56 Year
  Sex: Female
  Weight: 136.4 kg

DRUGS (8)
  1. ATENOLOL [Concomitant]
  2. AVANDIA [Suspect]
     Indication: DIABETES MELLITUS
     Dosage: 4MG PER DAY
     Route: 048
     Dates: start: 19990101, end: 20050601
  3. GLUCOPHAGE XR [Concomitant]
  4. PROZAC [Concomitant]
  5. INSULIN [Concomitant]
  6. LIPITOR [Concomitant]
  7. GLYBURIDE [Concomitant]
  8. CYCLOBENZAPRINE [Concomitant]

REACTIONS (3)
  - ATRIAL FIBRILLATION [None]
  - CARDIAC FAILURE CONGESTIVE [None]
  - CARDIAC DISORDER [None]
